FAERS Safety Report 9269088 (Version 3)
Quarter: 2013Q2

REPORT INFORMATION
  Report Type: Spontaneous
  Country: GB (occurrence: GB)
  Receive Date: 20130503
  Receipt Date: 20130529
  Transmission Date: 20140414
  Serious: Yes (Life-Threatening, Other)
  Sender: FDA-Public Use
  Company Number: GB-RANBAXY-2013RR-68398

PATIENT
  Age: 72 Year
  Sex: Female

DRUGS (14)
  1. CLARITHROMYCIN [Suspect]
     Indication: PLEURAL EFFUSION
     Dosage: 500 MG, BID
     Route: 048
     Dates: start: 20110607
  2. FENTANYL [Interacting]
     Indication: BONE PAIN
     Dosage: 87UG/H 72 HOURLY
     Route: 062
  3. NALOXONE [Suspect]
     Indication: RESPIRATORY ARREST
     Dosage: 200 ?G
     Route: 065
  4. NALOXONE [Suspect]
     Dosage: 4 MG/30 ML OVER 1 H
     Route: 042
  5. FENTANYL [Concomitant]
     Indication: PAIN
     Dosage: UNK
     Route: 062
  6. CANDESARTAN [Concomitant]
     Indication: PRODUCT USED FOR UNKNOWN INDICATION
     Dosage: UNK
     Route: 065
  7. DOXAZOSIN [Concomitant]
     Indication: PRODUCT USED FOR UNKNOWN INDICATION
     Dosage: UNK
     Route: 065
  8. ZOPICLONE [Concomitant]
     Indication: PRODUCT USED FOR UNKNOWN INDICATION
     Dosage: UNK
     Route: 065
  9. AMITRIPTYLINE [Concomitant]
     Indication: PRODUCT USED FOR UNKNOWN INDICATION
     Dosage: UNK
     Route: 065
  10. SEVELAMER [Concomitant]
     Indication: PRODUCT USED FOR UNKNOWN INDICATION
     Dosage: UNK
     Route: 065
  11. TAMOXIFEN [Concomitant]
     Indication: PRODUCT USED FOR UNKNOWN INDICATION
     Dosage: UNK
     Route: 065
  12. DEXAMETHASONE [Concomitant]
     Indication: PRODUCT USED FOR UNKNOWN INDICATION
     Dosage: UNK
     Route: 065
  13. PARACETAMOL [Concomitant]
     Indication: PRODUCT USED FOR UNKNOWN INDICATION
     Dosage: UNK, PRN
     Route: 065
  14. IBUPROFEN [Concomitant]
     Indication: PRODUCT USED FOR UNKNOWN INDICATION
     Dosage: UNK, PRN
     Route: 065

REACTIONS (6)
  - Drug interaction [Unknown]
  - Respiratory arrest [Recovered/Resolved]
  - Hypotension [Unknown]
  - Vomiting [Unknown]
  - Restlessness [Recovered/Resolved]
  - Muscle twitching [Recovered/Resolved]
